FAERS Safety Report 5216710-2 (Version None)
Quarter: 2007Q1

REPORT INFORMATION
  Report Type: 
  Country: None (occurrence: None)
  Receive Date: 20061130
  Receipt Date: 20060808
  Transmission Date: 20070707
  Serious: Yes (Hospitalization)
  Sender: FDA-Public Use
  Company Number: US200605001335

PATIENT
  Age: 80 Year
  Sex: Female
  Weight: 47.6 kg

DRUGS (8)
  1. ZYPREXA [Suspect]
     Indication: DEMENTIA
     Dosage: SEE IMAGE
     Dates: start: 20060401, end: 20060101
  2. ZYPREXA [Suspect]
     Indication: DEMENTIA
     Dosage: SEE IMAGE
     Dates: start: 20060101
  3. ARICEPT /JPN/ (DONEPEZIL HYDROCHLORIDE) [Concomitant]
  4. MEMANTINE HCL [Concomitant]
  5. LEXAPRO /USA/ (ESCITALOPRAM) [Concomitant]
  6. ACCUPRIL [Concomitant]
  7. PRAVACHOL [Concomitant]
  8. VITAMIN B12 [Concomitant]

REACTIONS (1)
  - CONVULSION [None]
